FAERS Safety Report 25776711 (Version 1)
Quarter: 2025Q3

REPORT INFORMATION
  Report Type: Spontaneous
  Country: US (occurrence: US)
  Receive Date: 20250909
  Receipt Date: 20250909
  Transmission Date: 20251021
  Serious: No
  Sender: DOMPE FARMACEUTICI
  Company Number: US-FARMAPROD-202503-0860

PATIENT
  Age: 77 Year
  Sex: Female

DRUGS (13)
  1. OXERVATE [Suspect]
     Active Substance: CENEGERMIN-BKBJ
     Indication: Neurotrophic keratopathy
     Route: 047
     Dates: start: 20250310
  2. OXERVATE [Suspect]
     Active Substance: CENEGERMIN-BKBJ
  3. DEXAMETHASONE\NEOMYCIN\POLYMYXIN B [Concomitant]
     Active Substance: DEXAMETHASONE\NEOMYCIN\POLYMYXIN B
  4. REFRESH TEARS [Concomitant]
     Active Substance: CARBOXYMETHYLCELLULOSE SODIUM
  5. MAGNESIUM [Concomitant]
     Active Substance: MAGNESIUM
  6. METFORMIN HYDROCHLORIDE [Concomitant]
     Active Substance: METFORMIN HYDROCHLORIDE
  7. ASPIRIN [Concomitant]
     Active Substance: ASPIRIN
  8. CARVEDILOL [Concomitant]
     Active Substance: CARVEDILOL
  9. SPIRONOLACTONE [Concomitant]
     Active Substance: SPIRONOLACTONE
  10. TRESIBA [Concomitant]
     Active Substance: INSULIN DEGLUDEC
  11. OZEMPIC [Concomitant]
     Active Substance: SEMAGLUTIDE
  12. NOVOLOG [Concomitant]
     Active Substance: INSULIN ASPART
  13. CRANBERRY [Concomitant]
     Active Substance: CRANBERRY

REACTIONS (6)
  - Eye pain [Not Recovered/Not Resolved]
  - Lacrimation increased [Not Recovered/Not Resolved]
  - Headache [Not Recovered/Not Resolved]
  - Ocular hyperaemia [Not Recovered/Not Resolved]
  - Swelling of eyelid [Not Recovered/Not Resolved]
  - Discharge [Not Recovered/Not Resolved]

NARRATIVE: CASE EVENT DATE: 20250311
